FAERS Safety Report 23081369 (Version 1)
Quarter: 2023Q4

REPORT INFORMATION
  Report Type: Spontaneous
  Country: GB (occurrence: GB)
  Receive Date: 20231018
  Receipt Date: 20231018
  Transmission Date: 20240110
  Serious: Yes (Hospitalization)
  Sender: FDA-Public Use
  Company Number: GB-JNJFOC-20231024306

PATIENT

DRUGS (1)
  1. NICORETTE [Suspect]
     Active Substance: NICOTINE
     Indication: Smoking cessation therapy
     Dosage: 2 MG (2MG PER LOZENGER)
     Route: 065
     Dates: start: 20231005

REACTIONS (6)
  - Pain [Unknown]
  - Chest pain [Unknown]
  - Hyperhidrosis [Unknown]
  - Headache [Unknown]
  - Paraesthesia [Unknown]
  - Heart rate increased [Unknown]

NARRATIVE: CASE EVENT DATE: 20231006
